FAERS Safety Report 8369072-6 (Version None)
Quarter: 2012Q2

REPORT INFORMATION
  Report Type: 
  Country: None (occurrence: None)
  Receive Date: 20120518
  Receipt Date: 20120510
  Transmission Date: 20120825
  Serious: Yes (Other)
  Sender: FDA-Public Use
  Company Number: US-BAYER-2012-006978

PATIENT
  Age: 14 Year
  Sex: Female
  Weight: 47.619 kg

DRUGS (15)
  1. SLOW FE [Concomitant]
     Dosage: UNK
     Dates: start: 20090101, end: 20100101
  2. IBUPROFEN [Concomitant]
     Indication: PAIN
  3. PROTONIX [Concomitant]
  4. DROSPIRENONE AND ETHINYL ESTRADIOL [Suspect]
     Indication: PREMENSTRUAL SYNDROME
  5. MEFENAMIC ACID [Concomitant]
     Dosage: 250 MG, PRN
     Dates: start: 20100112
  6. SE-VATE 21/7 [Concomitant]
  7. MIRCETTE [Concomitant]
     Indication: METRORRHAGIA
  8. YASMIN [Suspect]
  9. HYOSCYAMINE [Concomitant]
  10. NAPROSYN [Concomitant]
     Indication: ARTHRALGIA
  11. LEVSIN PB [Concomitant]
     Indication: IRRITABLE BOWEL SYNDROME
  12. PRILOSEC [Concomitant]
     Dosage: 40 MG, UNK
     Dates: start: 20100112
  13. LOESTRIN 1.5/30 [Concomitant]
  14. PONSTEL [Concomitant]
     Indication: DYSMENORRHOEA
  15. DROSPIRENONE AND ETHINYL ESTRADIOL [Suspect]
     Indication: ACNE
     Dosage: UNK
     Dates: start: 20090101, end: 20090501

REACTIONS (4)
  - INJURY [None]
  - PAIN [None]
  - ABDOMINAL PAIN [None]
  - CHOLELITHIASIS [None]
